FAERS Safety Report 9199206 (Version 1)
Quarter: 2013Q1

REPORT INFORMATION
  Report Type: Spontaneous
  Country: GB (occurrence: None)
  Receive Date: 20130326
  Receipt Date: 20130326
  Transmission Date: 20140127
  Serious: Yes (Other)
  Sender: FDA-Public Use
  Company Number: AUR-APL-2013-02427

PATIENT
  Age: 57 Year
  Sex: Male

DRUGS (13)
  1. RIBAVIRIN (RIBAVIRIN) [Suspect]
     Indication: PRODUCT USED FOR UNKNOWN INDICATION
  2. PEGYLATED INTERFERON [Suspect]
  3. TELAPREVIR (TELAPREVIR) [Suspect]
     Indication: HEPATITIS C
     Route: 048
  4. ASPIRIN (ACETYLSALICYLIC ACID) [Concomitant]
  5. BECLOMETHASONE (BECLOMETASONE DIPROPIONATE) [Concomitant]
  6. CETIRIZINE (CETIRIZINE) [Concomitant]
  7. FOLIC ACID (FOLIC ACID) [Concomitant]
  8. GAVISCON (GAVISCON /00237601/) [Concomitant]
  9. GLICLAZIDE (GLICLAZIDE) [Concomitant]
  10. GLYCERYL TRINITRATE (GLYCERYL TRINITRATE) [Concomitant]
  11. MIRTAZAPINE (MIRTAZAPINE) [Concomitant]
  12. OMEPRAZOLE (OMEPRAZOLE) [Concomitant]
  13. PRAVASTATIN (PRAVASTATIN) [Concomitant]

REACTIONS (2)
  - Electrocardiogram QT prolonged [None]
  - Heart rate increased [None]
